FAERS Safety Report 12540292 (Version 1)
Quarter: 2016Q3

REPORT INFORMATION
  Report Type: Spontaneous
  Country: US (occurrence: None)
  Receive Date: 20160707
  Receipt Date: 20160707
  Transmission Date: 20161109
  Serious: Yes (Hospitalization)
  Sender: FDA-Public Use
  Company Number: None

PATIENT
  Age: 80 Year
  Sex: Male
  Weight: 70.7 kg

DRUGS (1)
  1. WARFARIN [Suspect]
     Active Substance: WARFARIN
     Indication: ATRIAL FIBRILLATION
     Route: 048
     Dates: start: 20121118

REACTIONS (6)
  - International normalised ratio increased [None]
  - Gastritis [None]
  - Melaena [None]
  - Incorrect dose administered [None]
  - Toxicity to various agents [None]
  - Gastric haemorrhage [None]

NARRATIVE: CASE EVENT DATE: 20160629
